FAERS Safety Report 13817653 (Version 1)
Quarter: 2017Q3

REPORT INFORMATION
  Report Type: Spontaneous
  Country: CH (occurrence: CH)
  Receive Date: 20170731
  Receipt Date: 20170731
  Transmission Date: 20171127
  Serious: Yes (Other)
  Sender: FDA-Public Use
  Company Number: CH-PFIZER INC-2017325198

PATIENT
  Sex: Female

DRUGS (2)
  1. DOXYCLINE /00055701/ [Suspect]
     Active Substance: DOXYCYCLINE
     Dosage: 100 MG, UNK
     Route: 048
  2. DALACIN C [Suspect]
     Active Substance: CLINDAMYCIN PHOSPHATE
     Dosage: UNK
     Route: 048

REACTIONS (2)
  - Skin exfoliation [Unknown]
  - Haematochezia [Unknown]

NARRATIVE: CASE EVENT DATE: 20170715
